FAERS Safety Report 16739790 (Version 1)
Quarter: 2019Q3

REPORT INFORMATION
  Report Type: Spontaneous
  Country: US (occurrence: US)
  Receive Date: 20190826
  Receipt Date: 20190826
  Transmission Date: 20191005
  Serious: Yes (Hospitalization, Other)
  Sender: FDA-Public Use
  Company Number: US-MYLANLABS-2019M1077959

PATIENT
  Age: 28 Year
  Sex: Male

DRUGS (11)
  1. IDARUBICIN [Suspect]
     Active Substance: IDARUBICIN
     Indication: ACUTE MYELOID LEUKAEMIA
     Dosage: ^7 + 3^ CHEMOTHERAPY REGIMEN (CONSISTING OF 7 DAYS OF STANDARD-DOSE CYTARABINE PLUS 3 D...
     Route: 065
  2. CYTARABINE. [Suspect]
     Active Substance: CYTARABINE
     Indication: ACUTE MYELOID LEUKAEMIA
     Dosage: ^7 + 3^ CHEMOTHERAPY REGIMEN (CONSISTING OF 7 DAYS OF STANDARD-DOSE CYTARABINE PLUS 3 D...
     Route: 065
  3. CYTARABINE. [Suspect]
     Active Substance: CYTARABINE
     Dosage: 3 G/M2 AS AS CONSOLIDATION THERAPY
     Route: 065
  4. SORAFENIB [Suspect]
     Active Substance: SORAFENIB
     Indication: ACUTE MYELOID LEUKAEMIA
     Route: 065
  5. BUSULFAN. [Suspect]
     Active Substance: BUSULFAN
     Indication: ACUTE MYELOID LEUKAEMIA
     Dosage: 6000 MICROMOL MIN EVERY 24H FOR 4 CONSECUTIVE DAYS
     Route: 065
  6. QUIZARTINIB [Suspect]
     Active Substance: QUIZARTINIB
     Indication: ACUTE MYELOID LEUKAEMIA
     Route: 065
  7. TACROLIMUS. [Concomitant]
     Active Substance: TACROLIMUS
     Indication: PRODUCT USED FOR UNKNOWN INDICATION
     Route: 065
  8. FLUDARABINE [Suspect]
     Active Substance: FLUDARABINE PHOSPHATE
     Indication: ACUTE MYELOID LEUKAEMIA
     Dosage: FOR 4 CONSECUTIVE DAYS
     Route: 065
  9. PREDNISONE. [Suspect]
     Active Substance: PREDNISONE
     Indication: GRAFT VERSUS HOST DISEASE
     Route: 065
  10. AZACITIDINE. [Suspect]
     Active Substance: AZACITIDINE
     Indication: ACUTE MYELOID LEUKAEMIA
     Dosage: 3 CYCLES
     Route: 065
  11. ANTITHYMOCYTE IMMUNOGLOBULIN [Suspect]
     Active Substance: THYMOCYTE IMMUNE GLOBULIN NOS
     Indication: ACUTE MYELOID LEUKAEMIA
     Route: 065

REACTIONS (14)
  - Angiopathy [Recovering/Resolving]
  - Osteonecrosis [Unknown]
  - Adrenal insufficiency [Unknown]
  - Cardiac ventricular thrombosis [Unknown]
  - Cardiomyopathy [Recovering/Resolving]
  - Coronary artery disease [Recovering/Resolving]
  - Hypertension [Unknown]
  - Arterial stenosis [Recovering/Resolving]
  - Cardiac failure [Recovering/Resolving]
  - Coronary artery stenosis [Recovering/Resolving]
  - Peripheral artery stenosis [Recovering/Resolving]
  - Systolic dysfunction [Unknown]
  - Hyperglycaemia [Unknown]
  - Peripheral arterial occlusive disease [Recovering/Resolving]
